FAERS Safety Report 5531092-4 (Version None)
Quarter: 2007Q4

REPORT INFORMATION
  Report Type: 
  Country: None (occurrence: None)
  Receive Date: 20071130
  Receipt Date: 20071106
  Transmission Date: 20080405
  Serious: No
  Sender: FDA-Public Use
  Company Number: US-BOEHRINGER INGELHEIM PHARMACEUTICALS, INC.-2007-BP-24072BP

PATIENT
  Age: 46 Year
  Sex: Female

DRUGS (2)
  1. MOBIC [Suspect]
     Indication: ARTHRALGIA
     Route: 048
     Dates: start: 20071105, end: 20071105
  2. ADVIL LIQUI-GELS [Concomitant]

REACTIONS (3)
  - EYE SWELLING [None]
  - OEDEMA MOUTH [None]
  - URTICARIA [None]
